FAERS Safety Report 15923561 (Version 2)
Quarter: 2019Q1

REPORT INFORMATION
  Report Type: Report from Study
  Country: IT (occurrence: IT)
  Receive Date: 20190206
  Receipt Date: 20190220
  Transmission Date: 20190417
  Serious: Yes (Other)
  Sender: FDA-Public Use
  Company Number: IT-ACCORD-105724

PATIENT
  Age: 42 Year
  Sex: Female
  Weight: 77 kg

DRUGS (4)
  1. FYCOMPA [Interacting]
     Active Substance: PERAMPANEL
     Indication: PARTIAL SEIZURES
     Dosage: 2 MG, QD
     Route: 048
     Dates: start: 20151019, end: 20170925
  2. CARBAMAZEPINE. [Concomitant]
     Active Substance: CARBAMAZEPINE
     Indication: PARTIAL SEIZURES
     Dosage: 1400 MG
     Route: 048
  3. CLOBAZAM. [Concomitant]
     Active Substance: CLOBAZAM
     Indication: ANXIETY DISORDER
     Route: 048
  4. TOPIRAMATE. [Suspect]
     Active Substance: TOPIRAMATE
     Indication: PARTIAL SEIZURES
     Dosage: 650 MG, QD
     Route: 048
     Dates: start: 20151019, end: 20170925

REACTIONS (4)
  - Negative thoughts [Unknown]
  - Suicidal ideation [Unknown]
  - Drug interaction [Unknown]
  - Obsessive thoughts [Unknown]

NARRATIVE: CASE EVENT DATE: 20170824
